FAERS Safety Report 4447769-8 (Version None)
Quarter: 2004Q3

REPORT INFORMATION
  Report Type: 
  Country: None (occurrence: None)
  Receive Date: 20040913
  Receipt Date: 20040903
  Transmission Date: 20050211
  Serious: Yes (Life-Threatening)
  Sender: FDA-Public Use
  Company Number: 200412840JP

PATIENT
  Age: 86 Year
  Sex: Male

DRUGS (6)
  1. KETEK [Suspect]
     Indication: PNEUMONIA
     Route: 048
     Dates: start: 20040802, end: 20040801
  2. LEUPROLIDE ACETATE [Concomitant]
  3. ATARAX [Concomitant]
  4. GASTER [Concomitant]
  5. LENDORM [Concomitant]
  6. LAXOBERON [Concomitant]

REACTIONS (3)
  - BLOOD CREATININE INCREASED [None]
  - HEPATITIS FULMINANT [None]
  - LOSS OF CONSCIOUSNESS [None]
